FAERS Safety Report 13756091 (Version 2)
Quarter: 2017Q3

REPORT INFORMATION
  Report Type: Spontaneous
  Country: RO (occurrence: RO)
  Receive Date: 20170714
  Receipt Date: 20170714
  Transmission Date: 20171127
  Serious: Yes (Life-Threatening, Hospitalization, Disabling, Other)
  Sender: FDA-Public Use
  Company Number: RO-ABBVIE-17P-135-2037196-00

PATIENT
  Age: 68 Year
  Sex: Female
  Weight: 70 kg

DRUGS (7)
  1. EXVIERA [Suspect]
     Active Substance: DASABUVIR
     Indication: HEPATIC CIRRHOSIS
  2. DIABECONTROL [Suspect]
     Active Substance: CHLORPROPAMIDE
     Indication: DIABETES MELLITUS
     Route: 048
     Dates: start: 20170630
  3. OMEZ [Suspect]
     Active Substance: OMEPRAZOLE
     Indication: VOMITING
     Route: 048
     Dates: start: 20170706
  4. EXVIERA [Suspect]
     Active Substance: DASABUVIR
     Indication: HEPATITIS C
     Route: 048
     Dates: start: 20170630, end: 20170710
  5. VIEKIRAX [Suspect]
     Active Substance: OMBITASVIR\PARITAPREVIR\RITONAVIR
     Indication: HEPATITIS C
     Route: 048
     Dates: start: 20170630, end: 20170710
  6. VIEKIRAX [Suspect]
     Active Substance: OMBITASVIR\PARITAPREVIR\RITONAVIR
     Indication: HEPATIC CIRRHOSIS
  7. NORMIX [Suspect]
     Active Substance: RIFAXIMIN
     Indication: DIARRHOEA
     Route: 048
     Dates: start: 20170706

REACTIONS (7)
  - Encephalopathy [Recovering/Resolving]
  - Ascites [Unknown]
  - Diarrhoea [Recovering/Resolving]
  - Pleurisy [Unknown]
  - Disorientation [Unknown]
  - Vomiting [Recovering/Resolving]
  - Portosplenomesenteric venous thrombosis [Not Recovered/Not Resolved]

NARRATIVE: CASE EVENT DATE: 20170706
